FAERS Safety Report 8214365-6 (Version None)
Quarter: 2012Q1

REPORT INFORMATION
  Report Type: 
  Country: None (occurrence: None)
  Receive Date: 20120316
  Receipt Date: 20120307
  Transmission Date: 20120608
  Serious: Yes (Death, Life-Threatening, Hospitalization)
  Sender: FDA-Public Use
  Company Number: PL-JNJFOC-20110507281

PATIENT
  Sex: Male
  Weight: 90.5 kg

DRUGS (9)
  1. MESALAMINE [Concomitant]
     Indication: COLITIS ULCERATIVE
     Route: 048
     Dates: start: 20080114
  2. PIRIDOXINE [Concomitant]
     Route: 048
     Dates: start: 20080618
  3. PANTOPRAZOLE [Concomitant]
     Route: 048
     Dates: start: 20080201
  4. GOLIMUMAB [Suspect]
     Indication: COLITIS ULCERATIVE
     Route: 058
     Dates: start: 20080618, end: 20110420
  5. VITAMIN D [Concomitant]
     Route: 048
     Dates: start: 20080114
  6. VITAMIN B-12 [Concomitant]
     Route: 048
     Dates: start: 20080114
  7. GOLIMUMAB [Suspect]
     Route: 058
     Dates: start: 20080507
  8. FOLIC ACID [Concomitant]
     Route: 048
     Dates: start: 20041115
  9. CALCIUM CARBONATE [Concomitant]
     Route: 048
     Dates: start: 20080114

REACTIONS (5)
  - BACK PAIN [None]
  - GALLBLADDER CANCER [None]
  - ANAEMIA [None]
  - CHOLESTASIS [None]
  - ABDOMINAL PAIN [None]
